FAERS Safety Report 6475039-5 (Version None)
Quarter: 2009Q4

REPORT INFORMATION
  Report Type: 
  Country: None (occurrence: None)
  Receive Date: 20091204
  Receipt Date: 20090512
  Transmission Date: 20100525
  Serious: Yes (Other)
  Sender: FDA-Public Use
  Company Number: US-ELI_LILLY_AND_COMPANY-US200903000739

PATIENT
  Sex: Male

DRUGS (1)
  1. CIALIS [Suspect]
     Dosage: 20 MG, UNK
     Route: 065

REACTIONS (5)
  - ABNORMAL SENSATION IN EYE [None]
  - HEADACHE [None]
  - PHOTOPSIA [None]
  - RETINAL DETACHMENT [None]
  - VISUAL IMPAIRMENT [None]
